FAERS Safety Report 6134833-0 (Version None)
Quarter: 2009Q1

REPORT INFORMATION
  Report Type: 
  Country: None (occurrence: None)
  Receive Date: 20090327
  Receipt Date: 20090320
  Transmission Date: 20090719
  Serious: Yes (Hospitalization)
  Sender: FDA-Public Use
  Company Number: IT-NOVOPROD-285125

PATIENT
  Sex: Male

DRUGS (6)
  1. REPAGLINIDE [Suspect]
     Indication: DRUG USE FOR UNKNOWN INDICATION
     Route: 048
     Dates: start: 20080101, end: 20090227
  2. HUMALOG [Suspect]
     Indication: DRUG USE FOR UNKNOWN INDICATION
     Route: 058
     Dates: start: 20080101, end: 20090227
  3. ALLOPURINOL [Concomitant]
  4. CARVEDILOLO [Concomitant]
  5. PRITOR                             /01102601/ [Concomitant]
  6. FUROSEMIDE [Concomitant]

REACTIONS (3)
  - ALTERED STATE OF CONSCIOUSNESS [None]
  - HYPOGLYCAEMIA [None]
  - MALAISE [None]
